FAERS Safety Report 17545418 (Version 2)
Quarter: 2020Q2

REPORT INFORMATION
  Report Type: Spontaneous
  Country: US (occurrence: US)
  Receive Date: 20200316
  Receipt Date: 20200421
  Transmission Date: 20200713
  Serious: No
  Sender: FDA-Public Use
  Company Number: US-ASTRAZENECA-2020SE26629

PATIENT
  Age: 14032 Day
  Sex: Female
  Weight: 60.8 kg

DRUGS (7)
  1. SYMBICORT [Suspect]
     Active Substance: BUDESONIDE\FORMOTEROL FUMARATE DIHYDRATE
     Indication: ASTHMA
     Dosage: 160-4.5 IS PRESCRIBED TWO PUFFS DAILY FOR 60 DAYS
     Route: 055
     Dates: start: 20200114
  2. PREDNISONE. [Concomitant]
     Active Substance: PREDNISONE
     Dates: start: 202002, end: 202002
  3. SYMBICORT [Suspect]
     Active Substance: BUDESONIDE\FORMOTEROL FUMARATE DIHYDRATE
     Indication: ASTHMA
     Dosage: 160-4.5 IS PRESCRIBED TWO PUFFS DAILY FOR 60 DAYS
     Route: 055
     Dates: start: 2018, end: 2018
  4. SYMBICORT [Suspect]
     Active Substance: BUDESONIDE\FORMOTEROL FUMARATE DIHYDRATE
     Indication: ASTHMA
     Dosage: 160-4.5 IS PRESCRIBED TWO PUFFS DAILY FOR 60 DAYS
     Route: 055
     Dates: start: 20200214
  5. SYMBICORT [Suspect]
     Active Substance: BUDESONIDE\FORMOTEROL FUMARATE DIHYDRATE
     Indication: UPPER RESPIRATORY TRACT INFECTION
     Dosage: 160-4.5 IS PRESCRIBED TWO PUFFS DAILY FOR 60 DAYS
     Route: 055
     Dates: start: 2018, end: 2018
  6. SYMBICORT [Suspect]
     Active Substance: BUDESONIDE\FORMOTEROL FUMARATE DIHYDRATE
     Indication: UPPER RESPIRATORY TRACT INFECTION
     Dosage: 160-4.5 IS PRESCRIBED TWO PUFFS DAILY FOR 60 DAYS
     Route: 055
     Dates: start: 20200114
  7. SYMBICORT [Suspect]
     Active Substance: BUDESONIDE\FORMOTEROL FUMARATE DIHYDRATE
     Indication: UPPER RESPIRATORY TRACT INFECTION
     Dosage: 160-4.5 IS PRESCRIBED TWO PUFFS DAILY FOR 60 DAYS
     Route: 055
     Dates: start: 20200214

REACTIONS (5)
  - Off label use [Not Recovered/Not Resolved]
  - Intentional device use issue [Not Recovered/Not Resolved]
  - Drug delivery system malfunction [Unknown]
  - Nasopharyngitis [Recovering/Resolving]
  - Incorrect dose administered [Not Recovered/Not Resolved]

NARRATIVE: CASE EVENT DATE: 202002
